FAERS Safety Report 19309708 (Version 3)
Quarter: 2022Q4

REPORT INFORMATION
  Report Type: Report from Study
  Country: US (occurrence: US)
  Receive Date: 20210526
  Receipt Date: 20221129
  Transmission Date: 20230113
  Serious: Yes (Other)
  Sender: FDA-Public Use
  Company Number: NVSC2021US110120

PATIENT
  Age: 49 Year
  Sex: Female

DRUGS (1)
  1. KESIMPTA [Suspect]
     Active Substance: OFATUMUMAB
     Indication: Product used for unknown indication
     Dosage: UNK
     Route: 065
     Dates: start: 20210419

REACTIONS (14)
  - Cellulitis [Recovered/Resolved]
  - Cytokine release syndrome [Unknown]
  - Pruritus [Unknown]
  - Dyspnoea [Unknown]
  - Chest pain [Unknown]
  - Flushing [Unknown]
  - Influenza like illness [Unknown]
  - Headache [Unknown]
  - Myalgia [Unknown]
  - COVID-19 [Recovering/Resolving]
  - Bronchitis [Unknown]
  - Ear infection [Unknown]
  - Chills [Unknown]
  - Injection site pain [Unknown]

NARRATIVE: CASE EVENT DATE: 20221030
